FAERS Safety Report 5716639-7 (Version None)
Quarter: 2008Q2

REPORT INFORMATION
  Report Type: 
  Country: None (occurrence: None)
  Receive Date: 20080424
  Receipt Date: 20080416
  Transmission Date: 20081010
  Serious: Yes (Hospitalization)
  Sender: FDA-Public Use
  Company Number: NL-WYE-H03666108

PATIENT
  Sex: Female

DRUGS (3)
  1. PANTOZOL [Suspect]
     Indication: HELICOBACTER GASTRITIS
     Dosage: 20 MG FREQUENCY UNKNOWN
     Route: 048
     Dates: start: 20080110, end: 20080116
  2. KLACID [Concomitant]
     Indication: HELICOBACTER GASTRITIS
     Dosage: ^ 1 DF SOME DAY^
     Route: 048
     Dates: start: 20080110, end: 20080116
  3. AMOXICILLIN [Concomitant]
     Indication: HELICOBACTER GASTRITIS
     Dosage: ^1 DF SOME DAY^
     Route: 048
     Dates: start: 20080110, end: 20080116

REACTIONS (1)
  - DRUG RASH WITH EOSINOPHILIA AND SYSTEMIC SYMPTOMS [None]
